FAERS Safety Report 24542997 (Version 1)
Quarter: 2024Q4

REPORT INFORMATION
  Report Type: Report from Study
  Country: CA (occurrence: CA)
  Receive Date: 20241024
  Receipt Date: 20241024
  Transmission Date: 20250114
  Serious: Yes (Death)
  Sender: JOHNSON AND JOHNSON
  Company Number: CA-JNJFOC-20241062951

PATIENT
  Age: 72 Year
  Sex: Male

DRUGS (1)
  1. SIMPONI [Suspect]
     Active Substance: GOLIMUMAB
     Indication: Rheumatoid arthritis
     Dosage: STRENGTH: 50MG/0.5ML (ML MILLILITRE(S) )
     Route: 058
     Dates: start: 20170707

REACTIONS (1)
  - Death [Fatal]
